FAERS Safety Report 7502332-7 (Version None)
Quarter: 2011Q2

REPORT INFORMATION
  Report Type: 
  Country: None (occurrence: None)
  Receive Date: 20110525
  Receipt Date: 20110511
  Transmission Date: 20111010
  Serious: Yes (Other)
  Sender: FDA-Public Use
  Company Number: CA-JNJFOC-20110505974

PATIENT
  Sex: Male
  Weight: 93 kg

DRUGS (1)
  1. REMICADE [Suspect]
     Indication: COLITIS ULCERATIVE
     Dosage: ^500 MG 0, 2, 6, AND EVERY 8 WEEKS^
     Route: 042
     Dates: start: 20110421, end: 20110505

REACTIONS (2)
  - VISION BLURRED [None]
  - HYPERTENSION [None]
